FAERS Safety Report 22110502 (Version 1)
Quarter: 2023Q1

REPORT INFORMATION
  Report Type: Spontaneous
  Country: LT (occurrence: LT)
  Receive Date: 20230317
  Receipt Date: 20230317
  Transmission Date: 20230418
  Serious: Yes (Other)
  Sender: FDA-Public Use
  Company Number: LT-ROCHE-2925485

PATIENT
  Age: 61 Year
  Sex: Female
  Weight: 97 kg

DRUGS (15)
  1. BEVACIZUMAB [Suspect]
     Active Substance: BEVACIZUMAB
     Indication: Non-small cell lung cancer
     Dosage: 945 MILLIGRAM
     Route: 042
     Dates: start: 20210521
  2. BEVACIZUMAB [Suspect]
     Active Substance: BEVACIZUMAB
     Indication: Lung cancer metastatic
  3. CARBOPLATIN [Suspect]
     Active Substance: CARBOPLATIN
     Indication: Non-small cell lung cancer metastatic
     Dosage: 684 MILLIGRAM
     Route: 065
     Dates: start: 20210521
  4. CARBOPLATIN [Suspect]
     Active Substance: CARBOPLATIN
     Indication: Lung cancer metastatic
  5. ATEZOLIZUMAB [Suspect]
     Active Substance: ATEZOLIZUMAB
     Indication: Non-small cell lung cancer metastatic
     Dosage: ON 24/SEP/2021, THE PATIENT RECEIVED MOST RECENT DOSE OF ATEZOLIZUMAB PRIOR TO SERIOUS ADVERSE EVENT
     Route: 042
     Dates: start: 20210521
  6. ATEZOLIZUMAB [Suspect]
     Active Substance: ATEZOLIZUMAB
     Indication: Lung cancer metastatic
  7. PACLITAXEL [Suspect]
     Active Substance: PACLITAXEL
     Indication: Non-small cell lung cancer metastatic
     Dosage: 346 MILLIGRAM
     Route: 065
     Dates: start: 20210521
  8. PACLITAXEL [Suspect]
     Active Substance: PACLITAXEL
     Indication: Lung cancer metastatic
  9. TELMISARTAN AND HYDROCHLOROTHIAZIDE [Concomitant]
     Active Substance: HYDROCHLOROTHIAZIDE\TELMISARTAN
  10. DEXAMETHASONE [Concomitant]
     Active Substance: DEXAMETHASONE
     Dosage: 20MG OF DEXAMETHASONE 12HOURS AND 6 HOURS PRIOR PACLITAXEL INFUSION EVERY THREE WEEKS
  11. DEXAMETHASONE [Concomitant]
     Active Substance: DEXAMETHASONE
     Dosage: 20MG OF DEXAMETHASONE 12HOURS AND 6 HOURS PRIOR PACLITAXEL INFUSION EVERY THREE WEEKS
  12. DEXAMETHASONE [Concomitant]
     Active Substance: DEXAMETHASONE
     Dosage: UNK UNK, Q3WK
     Dates: start: 20210520
  13. DOCETAXEL [Concomitant]
     Active Substance: DOCETAXEL
     Dosage: UNK
     Dates: start: 20220722, end: 20230208
  14. VINORELBINE [Concomitant]
     Active Substance: VINORELBINE TARTRATE
     Dosage: UNK
     Dates: start: 20230217
  15. GEFITINIB [Concomitant]
     Active Substance: GEFITINIB
     Indication: Neoplasm malignant

REACTIONS (1)
  - Hypothyroidism [Not Recovered/Not Resolved]

NARRATIVE: CASE EVENT DATE: 20210924
